FAERS Safety Report 10163173 (Version 1)
Quarter: 2014Q2

REPORT INFORMATION
  Report Type: Spontaneous
  Country: FR (occurrence: FR)
  Receive Date: 20140509
  Receipt Date: 20140509
  Transmission Date: 20141212
  Serious: Yes (Hospitalization)
  Sender: FDA-Public Use
  Company Number: FR-GLAXOSMITHKLINE-B0990484A

PATIENT
  Age: 63 Year
  Sex: Female

DRUGS (12)
  1. ZELITREX [Suspect]
     Indication: VIRAL INFECTION
     Route: 048
     Dates: start: 201304, end: 20130417
  2. CO-APROVEL [Suspect]
     Indication: HYPERTENSION
     Route: 048
     Dates: end: 20130417
  3. VANCOMYCINE [Suspect]
     Indication: PRODUCT USED FOR UNKNOWN INDICATION
     Route: 042
     Dates: start: 20130415, end: 20130417
  4. ALKERAN [Suspect]
     Indication: PRODUCT USED FOR UNKNOWN INDICATION
     Route: 042
     Dates: start: 20130402, end: 201304
  5. PIPERACILLIN + TAZOBACTAM [Concomitant]
     Route: 042
     Dates: start: 20130413
  6. MABTHERA [Concomitant]
     Dates: start: 201211, end: 201302
  7. CARBOPLATINE [Concomitant]
     Dates: start: 201211, end: 201302
  8. ARACYTINE [Concomitant]
     Dates: start: 201211, end: 201302
  9. DEXAMETHASONE [Concomitant]
     Dates: start: 201211, end: 201302
  10. KARDEGIC [Concomitant]
  11. TAHOR [Concomitant]
  12. INEXIUM [Concomitant]

REACTIONS (3)
  - Renal failure acute [Recovering/Resolving]
  - Renal tubular necrosis [Unknown]
  - Oliguria [Recovering/Resolving]
